FAERS Safety Report 9189258 (Version 1)
Quarter: 2013Q1

REPORT INFORMATION
  Report Type: Spontaneous
  Country: US (occurrence: US)
  Receive Date: 20130326
  Receipt Date: 20130326
  Transmission Date: 20140127
  Serious: Yes (Other)
  Sender: FDA-Public Use
  Company Number: US-ACCORD-016912

PATIENT
  Age: 64 Year
  Sex: Female

DRUGS (2)
  1. PACLITAXEL [Suspect]
     Indication: CHEMOTHERAPY
  2. CARBOPLATIN [Concomitant]
     Indication: CHEMOTHERAPY

REACTIONS (1)
  - Toxic skin eruption [Recovered/Resolved]
